APPROVED DRUG PRODUCT: CEFPIRAMIDE SODIUM
Active Ingredient: CEFPIRAMIDE SODIUM
Strength: EQ 1GM BASE/VIAL
Dosage Form/Route: INJECTABLE;INJECTION
Application: N050633 | Product #002
Applicant: WYETH AYERST LABORATORIES
Approved: Jan 31, 1989 | RLD: No | RS: No | Type: DISCN